FAERS Safety Report 6817929-7 (Version None)
Quarter: 2010Q3

REPORT INFORMATION
  Report Type: 
  Country: None (occurrence: None)
  Receive Date: 20100706
  Receipt Date: 20100629
  Transmission Date: 20110219
  Serious: Yes (Hospitalization)
  Sender: FDA-Public Use
  Company Number: PHHO2010DE03380

PATIENT
  Sex: Female

DRUGS (4)
  1. NEORAL [Suspect]
     Indication: RENAL TRANSPLANT
     Dosage: 400 MG
     Route: 048
  2. MYFORTIC [Suspect]
     Indication: RENAL TRANSPLANT
     Dosage: 1440 MG
     Route: 048
  3. NO TREATMENT RECEIVED NOMED [Suspect]
     Indication: RENAL TRANSPLANT
     Dosage: NO TREATMENT
  4. PREDNISONE [Suspect]
     Indication: RENAL TRANSPLANT
     Dosage: 25 MG

REACTIONS (5)
  - BLOOD CREATININE INCREASED [None]
  - HYPERAEMIA [None]
  - NECROSIS [None]
  - NEPHRECTOMY [None]
  - VENOUS THROMBOSIS [None]
